FAERS Safety Report 4784088-4 (Version None)
Quarter: 2005Q3

REPORT INFORMATION
  Report Type: 
  Country: None (occurrence: None)
  Receive Date: 20050930
  Receipt Date: 20050609
  Transmission Date: 20060218
  Serious: No
  Sender: FDA-Public Use
  Company Number: US-GLAXOSMITHKLINE-A0562008A

PATIENT
  Age: 74 Year
  Sex: Female
  Weight: 62.3 kg

DRUGS (2)
  1. FLOVENT [Suspect]
     Indication: EMPHYSEMA
     Dosage: 2PUFF TWICE PER DAY
     Route: 055
     Dates: start: 20050602, end: 20050603
  2. SPIRIVA [Concomitant]
     Indication: EMPHYSEMA
     Dosage: 1PUFF PER DAY
     Route: 055
     Dates: start: 20050408

REACTIONS (2)
  - FLUSHING [None]
  - PARAESTHESIA [None]
